FAERS Safety Report 7798080-9 (Version None)
Quarter: 2011Q4

REPORT INFORMATION
  Report Type: 
  Country: None (occurrence: None)
  Receive Date: 20111005
  Receipt Date: 20110928
  Transmission Date: 20120403
  Serious: Yes (Other)
  Sender: FDA-Public Use
  Company Number: JP-CEPHALON-2011004817

PATIENT
  Age: 5 Year
  Sex: Male

DRUGS (1)
  1. TRISENOX [Suspect]
     Route: 042
     Dates: start: 20110816, end: 20110907

REACTIONS (1)
  - RESPIRATORY DISORDER [None]
